FAERS Safety Report 7730236-3 (Version None)
Quarter: 2011Q3

REPORT INFORMATION
  Report Type: 
  Country: None (occurrence: None)
  Receive Date: 20110824
  Receipt Date: 20110819
  Transmission Date: 20111222
  Serious: Yes (Other)
  Sender: FDA-Public Use
  Company Number: 2011029207

PATIENT
  Age: 58 Year
  Sex: Female
  Weight: 52.1637 kg

DRUGS (20)
  1. AMBIEN [Concomitant]
  2. NEURONTIN [Concomitant]
  3. HIZENTRA [Suspect]
     Indication: IMMUNODEFICIENCY COMMON VARIABLE
     Dosage: SEE IMAGE
     Route: 058
     Dates: start: 20101015
  4. HIZENTRA [Suspect]
     Indication: IMMUNODEFICIENCY COMMON VARIABLE
     Dosage: SEE IMAGE
     Route: 058
     Dates: start: 20110713
  5. DARVOCET [Concomitant]
  6. LIOTHYROXINE (LIOTHYROXINE) [Concomitant]
  7. PREDNISONE [Concomitant]
  8. ALLEGRA [Concomitant]
  9. CARDIZEM [Concomitant]
  10. HIZENTRA [Suspect]
  11. ZOCOR [Concomitant]
  12. VICODIN [Concomitant]
  13. HIZENTRA [Suspect]
  14. FLONASE [Concomitant]
  15. ADVAIR DISKUS 100/50 [Concomitant]
  16. PRILOSEC [Concomitant]
  17. HIZENTRA [Suspect]
  18. COUMADIN [Concomitant]
  19. DIGOXIN [Concomitant]
  20. LEVOTHYROXINE SODIUM [Concomitant]

REACTIONS (3)
  - HEADACHE [None]
  - INFUSION RELATED REACTION [None]
  - URINARY TRACT INFECTION [None]
